FAERS Safety Report 7815538-4 (Version None)
Quarter: 2011Q4

REPORT INFORMATION
  Report Type: 
  Country: None (occurrence: None)
  Receive Date: 20111014
  Receipt Date: 20111005
  Transmission Date: 20120403
  Serious: Yes (Hospitalization)
  Sender: FDA-Public Use
  Company Number: CA-JNJFOC-20110809512

PATIENT
  Sex: Male
  Weight: 83.92 kg

DRUGS (2)
  1. REMICADE [Suspect]
     Indication: CROHN'S DISEASE
     Route: 042
     Dates: start: 20100101
  2. ASACOL [Concomitant]
     Route: 065

REACTIONS (3)
  - PROSTATE CANCER [None]
  - DIABETES MELLITUS [None]
  - LYMPHADENOPATHY [None]
